FAERS Safety Report 5387690-4 (Version None)
Quarter: 2007Q3

REPORT INFORMATION
  Report Type: 
  Country: None (occurrence: None)
  Receive Date: 20070716
  Receipt Date: 20070705
  Transmission Date: 20080115
  Serious: Yes (Life-Threatening, Hospitalization)
  Sender: FDA-Public Use
  Company Number: DE-JNJFOC-20070700834

PATIENT
  Sex: Male
  Weight: 71 kg

DRUGS (11)
  1. DURAGESIC-100 [Suspect]
     Indication: METASTATIC PAIN
     Route: 062
  2. CITALOPRAM HYDROBROMIDE [Suspect]
     Indication: DEPRESSION
     Route: 048
  3. DIAZEPAM [Suspect]
     Indication: SLEEP DISORDER
     Route: 048
  4. VALORON [Suspect]
     Indication: CANCER PAIN
     Route: 048
  5. ASPIRIN [Concomitant]
     Route: 048
  6. KREON [Concomitant]
     Indication: MARASMUS
     Route: 048
  7. KREON [Concomitant]
     Indication: PANCREATIC CARCINOMA
     Route: 048
  8. PANTOZOL [Concomitant]
     Indication: PROPHYLAXIS AGAINST GASTROINTESTINAL ULCER
  9. AMLODIPINE [Concomitant]
     Indication: HYPERTENSION
     Route: 048
  10. FOLIC ACID [Concomitant]
     Indication: DRUG USE FOR UNKNOWN INDICATION
     Route: 048
  11. METHOTREXAT [Concomitant]
     Indication: POLYARTHRITIS
     Route: 048

REACTIONS (4)
  - CONFUSIONAL STATE [None]
  - COORDINATION ABNORMAL [None]
  - FALL [None]
  - INAPPROPRIATE SCHEDULE OF DRUG ADMINISTRATION [None]
